FAERS Safety Report 19809411 (Version 1)
Quarter: 2021Q3

REPORT INFORMATION
  Report Type: Spontaneous
  Country: US (occurrence: US)
  Receive Date: 20210904
  Receipt Date: 20210904
  Transmission Date: 20211014
  Serious: No
  Sender: FDA-Public Use
  Company Number: None

PATIENT
  Sex: Male

DRUGS (1)
  1. SODIUM PHENYLBUTYRATE 500MG PAR [Suspect]
     Active Substance: SODIUM PHENYLBUTYRATE
     Indication: AMYOTROPHIC LATERAL SCLEROSIS
     Route: 048
     Dates: start: 20210408

REACTIONS (1)
  - Gait disturbance [None]
